FAERS Safety Report 11154735 (Version 4)
Quarter: 2015Q4

REPORT INFORMATION
  Report Type: Spontaneous
  Country: FI (occurrence: FI)
  Receive Date: 20150602
  Receipt Date: 20151013
  Transmission Date: 20160304
  Serious: Yes (Hospitalization, Disabling)
  Sender: FDA-Public Use
  Company Number: FI-AMGEN-FINSP2015052601

PATIENT
  Age: 64 Year
  Sex: Female

DRUGS (14)
  1. FLECAINIDE ACETATE. [Concomitant]
     Active Substance: FLECAINIDE ACETATE
     Indication: ATRIAL FIBRILLATION
     Dosage: 100 MG, 1X/DAY
     Dates: start: 20100601
  2. ORLOC [Concomitant]
     Active Substance: BISOPROLOL FUMARATE
     Dosage: UNK
     Dates: start: 20090206
  3. PRED FORTE [Concomitant]
     Active Substance: PREDNISOLONE ACETATE
     Dosage: UNK
     Dates: start: 20150112
  4. PULMICORT TURBUHALER [Concomitant]
     Active Substance: BUDESONIDE
     Dosage: 200 UG/DOSE, 2 DOSES X 2
     Route: 055
     Dates: start: 20100323
  5. TREXAN                             /00113801/ [Concomitant]
     Active Substance: METHOTREXATE SODIUM
     Dosage: 7.5 MG, WEEKLY
     Dates: start: 20140114
  6. ZOLT                               /01159001/ [Concomitant]
     Dosage: 30 MG, 1X/DAY
     Dates: start: 20140306
  7. PANADOL                            /00020001/ [Concomitant]
     Dosage: 665 MG, 1-2 TIMES/DAY
     Dates: start: 20140306
  8. FOLIC ACID. [Concomitant]
     Active Substance: FOLIC ACID
     Dosage: UNK
     Dates: start: 20140115
  9. BRICANYL [Concomitant]
     Active Substance: TERBUTALINE SULFATE
     Dosage: 0.5 MG/DOSE, 1-2 DOSES AS NEEDED
     Route: 055
     Dates: start: 20100323
  10. ENBREL [Suspect]
     Active Substance: ETANERCEPT
     Indication: ANKYLOSING SPONDYLITIS
     Dosage: 50 MG, WEEKLY
     Route: 058
     Dates: start: 20150209, end: 20150223
  11. CALCICHEW-D3 [Concomitant]
     Active Substance: CALCIUM\CHOLECALCIFEROL
     Dosage: 1 DF (TABLET) 2X/DAY
     Dates: start: 20061026
  12. REMICADE [Suspect]
     Active Substance: INFLIXIMAB
     Indication: ANKYLOSING SPONDYLITIS
     Dosage: 200 MG, EVERY 8 WEEKS
     Route: 042
     Dates: start: 2005, end: 20141210
  13. MAREVAN [Concomitant]
     Active Substance: WARFARIN SODIUM
     Indication: ATRIAL FIBRILLATION
     Dosage: UNK
     Dates: start: 20090409
  14. COCILLANA                          /01428001/ [Concomitant]
     Dosage: 2.5-5 ML X 1-3 TIMES, AS NEEDED
     Dates: start: 20120917

REACTIONS (3)
  - Myelitis [Not Recovered/Not Resolved]
  - Peripheral swelling [Unknown]
  - Condition aggravated [Not Recovered/Not Resolved]

NARRATIVE: CASE EVENT DATE: 2014
